FAERS Safety Report 7558156-8 (Version None)
Quarter: 2011Q2

REPORT INFORMATION
  Report Type: 
  Country: None (occurrence: None)
  Receive Date: 20110620
  Receipt Date: 20110610
  Transmission Date: 20111010
  Serious: Yes (Hospitalization)
  Sender: FDA-Public Use
  Company Number: US-ASTRAZENECA-2010SE32303

PATIENT
  Age: 89 Year
  Sex: Female

DRUGS (18)
  1. TOPROL-XL [Suspect]
     Route: 048
  2. COLACE [Concomitant]
  3. PROZAC [Concomitant]
  4. PRILOSEC [Concomitant]
  5. ASPIRIN [Concomitant]
  6. NITROGLYCERIN [Concomitant]
  7. LISINOPRIL [Concomitant]
  8. POTASSIUM [Concomitant]
     Dosage: 20 MEQ
  9. THERAGRAM [Concomitant]
  10. LASIX [Concomitant]
  11. LIPITOR [Concomitant]
  12. COREG [Concomitant]
  13. IMDUR [Concomitant]
  14. MILK OF MAGNESIA TAB [Concomitant]
  15. VICKS VAPOR RUB [Concomitant]
  16. NEXIUM [Suspect]
     Route: 048
  17. MAALOX [Concomitant]
     Dosage: 1 TAB AT AM AND PM
  18. XANAX [Concomitant]

REACTIONS (12)
  - CARDIAC DISORDER [None]
  - NASOPHARYNGITIS [None]
  - OESOPHAGEAL DISORDER [None]
  - BLOOD PRESSURE DIASTOLIC INCREASED [None]
  - DRUG DOSE OMISSION [None]
  - HYPERTENSION [None]
  - CEREBROVASCULAR ACCIDENT [None]
  - CARDIAC FAILURE CONGESTIVE [None]
  - ULCER [None]
  - HIATUS HERNIA [None]
  - SINUS DISORDER [None]
  - THROMBOPHLEBITIS [None]
